FAERS Safety Report 10777227 (Version 2)
Quarter: 2015Q1

REPORT INFORMATION
  Report Type: Report from Study
  Country: CZ (occurrence: CZ)
  Receive Date: 20150209
  Receipt Date: 20150226
  Transmission Date: 20150721
  Serious: Yes (Hospitalization)
  Sender: FDA-Public Use
  Company Number: CZ-AMGEN-CZECT2015001037

PATIENT
  Age: 68 Year
  Sex: Male
  Weight: 81 kg

DRUGS (24)
  1. CARFILZOMIB [Suspect]
     Active Substance: CARFILZOMIB
     Indication: PLASMA CELL MYELOMA
     Dosage: 20 MG/M2, PER CHEMO REGIM
     Route: 042
     Dates: start: 20141030
  2. HERPESIN                           /00587301/ [Concomitant]
     Indication: INFECTION PROPHYLAXIS
     Dosage: 400 MG, QD
     Route: 048
     Dates: start: 20141030
  3. ATORIS [Concomitant]
     Active Substance: ATORVASTATIN CALCIUM
     Indication: HYPERPROTEINAEMIA
     Dosage: 10 MG, QD
     Route: 048
     Dates: end: 20150106
  4. SECTRAL [Concomitant]
     Active Substance: ACEBUTOLOL HYDROCHLORIDE
     Indication: HYPERTENSION
     Dosage: 200 MG, QD
     Route: 048
     Dates: start: 20141011
  5. ZOFRAN                             /00955301/ [Concomitant]
     Active Substance: ONDANSETRON HYDROCHLORIDE
     Indication: PROPHYLAXIS OF NAUSEA AND VOMITING
     Dosage: 4 MG, AS NECESSARY
     Route: 048
     Dates: start: 20141030
  6. GODASAL [Concomitant]
     Indication: MYOCARDIAL ISCHAEMIA
     Dosage: 100 MG, QD
     Route: 048
     Dates: start: 20141027
  7. HYPNOGEN [Concomitant]
     Active Substance: ZOLPIDEM\ZOLPIDEM TARTRATE
     Indication: INSOMNIA
     Dosage: 10 MG, AS NECESSARY
     Route: 048
     Dates: start: 20141016
  8. NOVALGIN [Concomitant]
     Active Substance: METAMIZOLE SODIUM
     Indication: SPINAL PAIN
     Dosage: 500 MG, AS NECESSARY
     Route: 048
     Dates: start: 20141103
  9. LUNALDIN [Concomitant]
     Indication: SPINAL PAIN
     Dosage: 100 MUG, AS NECESSARY
     Route: 048
     Dates: start: 20141013
  10. FRAXIPARINE                        /01437701/ [Concomitant]
     Active Substance: NADROPARIN CALCIUM
     Indication: THROMBOSIS PROPHYLAXIS
     Dosage: 0.6 ML, QD
     Route: 058
     Dates: start: 20141216
  11. SYNTOPHYLLIN                       /00003701/ [Concomitant]
     Indication: PNEUMONIA
     Dosage: 240 MG, QD
     Route: 042
     Dates: start: 20141216, end: 20141222
  12. CITALOPRAM [Concomitant]
     Active Substance: CITALOPRAM HYDROBROMIDE
     Indication: ANXIETY
     Dosage: 10 MG, QD
     Route: 048
     Dates: start: 20141017
  13. PARALEN [Concomitant]
     Active Substance: ACETAMINOPHEN
     Indication: PROPHYLAXIS
  14. FURON                              /00032601/ [Concomitant]
     Active Substance: FUROSEMIDE
     Indication: RENAL FAILURE
     Dosage: 80 MG, QD
     Route: 048
     Dates: start: 20141128
  15. PAMITOR [Concomitant]
     Active Substance: PRAVASTATIN SODIUM
     Indication: OSTEOLYSIS
     Dosage: 60 MG, QMO
     Route: 042
     Dates: start: 20141031
  16. DUROGESIC [Concomitant]
     Active Substance: FENTANYL
     Indication: SPINAL PAIN
     Dosage: 50 MUG, AS NECESSARY
     Route: 062
     Dates: start: 20141018
  17. PARALEN [Concomitant]
     Active Substance: ACETAMINOPHEN
     Indication: PYREXIA
     Dosage: 500 MG, QD
     Route: 048
     Dates: start: 20141128
  18. MELPHALAN [Suspect]
     Active Substance: MELPHALAN
     Indication: PLASMA CELL MYELOMA
     Dosage: 18 MG, PER CHEMO REGIM
     Route: 048
     Dates: start: 20141030
  19. PREDNISONE. [Suspect]
     Active Substance: PREDNISONE
     Indication: PLASMA CELL MYELOMA
     Dosage: 120 MG, PER CHEMO REGIM
     Route: 048
     Dates: start: 20141030
  20. ZOFRAN                             /00955301/ [Concomitant]
     Active Substance: ONDANSETRON HYDROCHLORIDE
     Indication: NAUSEA
  21. MILURIT [Concomitant]
     Active Substance: ALLOPURINOL
     Indication: HYPERURICAEMIA
     Dosage: 100 MG, QD
     Route: 048
  22. FUROSEMID                          /00032601/ [Concomitant]
     Active Substance: FUROSEMIDE
     Indication: RENAL FAILURE
     Dosage: 40 MG, QD
     Route: 048
     Dates: start: 20141014
  23. LACTULOSA [Concomitant]
     Indication: CONSTIPATION
     Dosage: 1 OTHER, AS NECESSARY
     Route: 048
     Dates: start: 20141028
  24. GLYCERIN                           /00200601/ [Concomitant]
     Indication: CONSTIPATION
     Dosage: 1 OTHER, AS NECESSARY
     Route: 054
     Dates: start: 20141028

REACTIONS (3)
  - Cardiac failure [Recovered/Resolved]
  - Cardiac failure [Recovered/Resolved]
  - Bronchopneumonia [Recovered/Resolved]

NARRATIVE: CASE EVENT DATE: 20150107
